FAERS Safety Report 18898805 (Version 1)
Quarter: 2021Q1

REPORT INFORMATION
  Report Type: Spontaneous
  Country: US (occurrence: US)
  Receive Date: 20210216
  Receipt Date: 20210216
  Transmission Date: 20210420
  Serious: No
  Sender: FDA-Public Use
  Company Number: US-GLAXOSMITHKLINE-USCH2021GSK006825

PATIENT
  Sex: Female
  Weight: 48.99 kg

DRUGS (1)
  1. ADVIL [Suspect]
     Active Substance: IBUPROFEN
     Indication: PRODUCT USED FOR UNKNOWN INDICATION
     Dosage: UNK (2 ADVIL)
     Route: 065
     Dates: start: 20210130

REACTIONS (2)
  - Adverse drug reaction [Unknown]
  - Fatigue [Unknown]
